FAERS Safety Report 4662725-2 (Version None)
Quarter: 2005Q2

REPORT INFORMATION
  Report Type: 
  Country: None (occurrence: None)
  Receive Date: 20050516
  Receipt Date: 20050428
  Transmission Date: 20051028
  Serious: Yes (Hospitalization)
  Sender: FDA-Public Use
  Company Number: FR-GLAXOSMITHKLINE-B0379737A

PATIENT
  Age: 75 Year
  Sex: Male
  Weight: 90 kg

DRUGS (13)
  1. ARIXTRA [Suspect]
     Dosage: 1UNIT PER DAY
     Route: 058
     Dates: start: 20030509, end: 20030514
  2. FRAGMIN [Suspect]
     Dosage: .2ML PER DAY
     Route: 058
     Dates: start: 20030515, end: 20030516
  3. LOVENOX [Suspect]
     Dosage: 60MG TWICE PER DAY
     Route: 058
     Dates: start: 20030504, end: 20030508
  4. TOPALGIC ( FRANCE ) [Concomitant]
     Dosage: 50MG FOUR TIMES PER DAY
     Route: 048
     Dates: start: 20030513
  5. EFFERALGAN [Concomitant]
     Dosage: 1G THREE TIMES PER DAY
     Route: 048
     Dates: start: 20030509
  6. MOPRAL [Concomitant]
     Dosage: 20MG PER DAY
     Route: 048
     Dates: start: 20030509
  7. ALLOPURINOL [Concomitant]
  8. PRAVASTATIN [Concomitant]
  9. PERFALGAN [Concomitant]
  10. PROFENID [Concomitant]
     Route: 042
  11. ACUPAN [Concomitant]
  12. NAROPIN [Concomitant]
  13. CEFACIDAL [Concomitant]

REACTIONS (4)
  - DEEP VEIN THROMBOSIS [None]
  - OXYGEN SATURATION DECREASED [None]
  - TACHYCARDIA [None]
  - THERAPEUTIC RESPONSE DECREASED [None]
